FAERS Safety Report 7207340-1 (Version None)
Quarter: 2010Q4

REPORT INFORMATION
  Report Type: 
  Country: None (occurrence: None)
  Receive Date: 20101217
  Receipt Date: 20101203
  Transmission Date: 20110411
  Serious: Yes (Hospitalization)
  Sender: FDA-Public Use
  Company Number: DSJ-2010-21620

PATIENT
  Age: 76 Year
  Sex: Female

DRUGS (6)
  1. AMLODIPINE BESYLATE AND OLMESARTAN MEDOXOMIL [Suspect]
     Indication: HYPERTENSION
     Dosage: 40/5 MG (1 IN 1 D), PER ORAL
     Route: 048
     Dates: start: 20090101, end: 20101202
  2. AMLODIPINE BESYLATE AND OLMESARTAN MEDOXOMIL [Suspect]
     Indication: HYPERTENSION
     Dosage: 40/5 MG (1 IN 1 D), PER ORAL
     Route: 048
     Dates: start: 20101202
  3. METOPROLOL TARTRATE [Concomitant]
  4. SIMVASTATIN [Concomitant]
  5. METFORMIN [Concomitant]
  6. ACETYLSALICYLIC ACID SRT [Concomitant]

REACTIONS (1)
  - VASCULAR GRAFT [None]
